FAERS Safety Report 8417408 (Version 3)
Quarter: 2012Q4

REPORT INFORMATION
  Report Type: 
  Country: IE (occurrence: IE)
  Receive Date: 20120221
  Receipt Date: 20120928
  Transmission Date: 20130627
  Serious: Yes (Other)
  Sender: FDA-Public Use
  Company Number: IE-AMGEN-IRLSP2012009032

PATIENT
  Age: 54 Year
  Sex: Male
  Weight: 97.4 kg

DRUGS (10)
  1. ENBREL [Suspect]
     Indication: PSORIASIS
     Dosage: 50 mg, 2x/week
     Route: 058
     Dates: start: 20041111, end: 20080331
  2. ENBREL [Suspect]
     Indication: PSORIATIC ARTHROPATHY
     Dosage: 50 mg, 2x/week
     Route: 058
     Dates: start: 20080605, end: 20100901
  3. METHOTREXATE [Suspect]
     Indication: PSORIASIS
     Dosage: 10 mg, qwk
     Dates: start: 20030112, end: 20050331
  4. HUMIRA [Suspect]
     Indication: PSORIASIS
     Dosage: UNK
     Dates: start: 20080331, end: 20080605
  5. NU-SEALS ASPIRIN [Concomitant]
     Indication: PROPHYLAXIS
     Dosage: 75 mg, UNK
  6. LIPITOR [Concomitant]
     Indication: HYPERLIPIDAEMIA
     Dosage: 10 mg, UNK
  7. GLUCOPHAGE [Concomitant]
     Indication: DIABETES MELLITUS
     Dosage: 500 mg, 1 in 2 D
     Dates: start: 20090510
  8. FOLIC ACID [Concomitant]
     Indication: PROPHYLAXIS
     Dosage: 5 mg, UNK
     Dates: start: 20031001, end: 20050331
  9. CALCICHEW-D3 [Concomitant]
     Dosage: 2 tablets daily
  10. PSORALEN [Concomitant]
     Indication: PSORIATIC ARTHROPATHY
     Dosage: UNK

REACTIONS (2)
  - Metastatic neoplasm [Unknown]
  - Psoriasis [Unknown]
